FAERS Safety Report 21759735 (Version 1)
Quarter: 2022Q4

REPORT INFORMATION
  Report Type: Other
  Country: GB (occurrence: GB)
  Receive Date: 20221221
  Receipt Date: 20221221
  Transmission Date: 20230113
  Serious: Yes (Disabling)
  Sender: FDA-Public Use
  Company Number: GB-MHRA-MED-202212081642563060-CSQZP

PATIENT

DRUGS (1)
  1. TIMOLOL [Suspect]
     Active Substance: TIMOLOL
     Dosage: 0.25% 1 DROP BOTH EYES BD; ;

REACTIONS (1)
  - Dizziness postural [Unknown]
